FAERS Safety Report 9172986 (Version 1)
Quarter: 2013Q1

REPORT INFORMATION
  Report Type: Spontaneous
  Country: US (occurrence: None)
  Receive Date: 20130319
  Receipt Date: 20130319
  Transmission Date: 20140127
  Serious: Yes (Hospitalization)
  Sender: FDA-Public Use
  Company Number: None

PATIENT
  Age: 21 Year
  Sex: Female
  Weight: 95.9 kg

DRUGS (1)
  1. OXYTOCIN [Suspect]
     Dosage: 30 UNITS IN LR 500ML X1 IV BOLUS
     Route: 040
     Dates: start: 20130110, end: 20130110

REACTIONS (1)
  - Drug effect decreased [None]
